FAERS Safety Report 14527085 (Version 1)
Quarter: 2018Q1

REPORT INFORMATION
  Report Type: Spontaneous
  Country: US (occurrence: US)
  Receive Date: 20180212
  Receipt Date: 20180212
  Transmission Date: 20180509
  Serious: No
  Sender: FDA-Public Use
  Company Number: None

PATIENT
  Age: 62 Year
  Sex: Female

DRUGS (21)
  1. SPIRIVA [Concomitant]
     Active Substance: TIOTROPIUM BROMIDE MONOHYDRATE
  2. LONSURF [Suspect]
     Active Substance: TIPIRACIL HYDROCHLORIDE\TRIFLURIDINE
     Indication: RECTAL CANCER
     Route: 048
     Dates: start: 20180110
  3. STIVARGA [Concomitant]
     Active Substance: REGORAFENIB
  4. SYMBICORT [Concomitant]
     Active Substance: BUDESONIDE\FORMOTEROL FUMARATE DIHYDRATE
  5. LEVEMIR [Concomitant]
     Active Substance: INSULIN DETEMIR
  6. NOVOLOG [Concomitant]
     Active Substance: INSULIN ASPART
  7. TRAMADOL. [Concomitant]
     Active Substance: TRAMADOL
  8. KLOR-CON [Concomitant]
     Active Substance: POTASSIUM CHLORIDE
  9. LONSURF [Suspect]
     Active Substance: TIPIRACIL HYDROCHLORIDE\TRIFLURIDINE
     Indication: METASTASES TO LUNG
     Route: 048
     Dates: start: 20180110
  10. GABAPENTIN. [Concomitant]
     Active Substance: GABAPENTIN
  11. ALBUTEROL. [Concomitant]
     Active Substance: ALBUTEROL
  12. FUROSEMIDE. [Concomitant]
     Active Substance: FUROSEMIDE
  13. CARDIZEM [Concomitant]
     Active Substance: DILTIAZEM HYDROCHLORIDE
  14. CHANTIX [Concomitant]
     Active Substance: VARENICLINE TARTRATE
  15. LORAZEPAM. [Concomitant]
     Active Substance: LORAZEPAM
  16. PRAVASTATIN. [Concomitant]
     Active Substance: PRAVASTATIN
  17. ATENOLOL. [Concomitant]
     Active Substance: ATENOLOL
  18. FLUCONAZOLE. [Concomitant]
     Active Substance: FLUCONAZOLE
  19. NITROGLYCERIN. [Concomitant]
     Active Substance: NITROGLYCERIN
  20. LOMOTIL [Concomitant]
     Active Substance: ATROPINE SULFATE\DIPHENOXYLATE HYDROCHLORIDE
  21. LOSARTAN. [Concomitant]
     Active Substance: LOSARTAN

REACTIONS (2)
  - Fall [None]
  - Malaise [None]

NARRATIVE: CASE EVENT DATE: 20180210
